FAERS Safety Report 19644504 (Version 3)
Quarter: 2022Q1

REPORT INFORMATION
  Report Type: Other
  Country: US (occurrence: None)
  Receive Date: 20210801
  Receipt Date: 20220322
  Transmission Date: 20220423
  Serious: Yes (Death)
  Sender: FDA-Public Use
  Company Number: US-ROCHE-2874705

PATIENT
  Age: 56 Year
  Sex: Female

DRUGS (14)
  1. OCREVUS [Suspect]
     Active Substance: OCRELIZUMAB
     Indication: Relapsing-remitting multiple sclerosis
     Route: 065
  2. OCREVUS [Suspect]
     Active Substance: OCRELIZUMAB
     Indication: Primary progressive multiple sclerosis
  3. BACLOFEN [Concomitant]
     Active Substance: BACLOFEN
  4. COLACE [Concomitant]
     Active Substance: DOCUSATE SODIUM
     Dosage: EVERY DAY AT BEDTIME AS NEEDED
     Route: 048
  5. CYMBALTA [Concomitant]
     Active Substance: DULOXETINE HYDROCHLORIDE
     Dosage: EVERY DAY
     Route: 048
  6. FERROUS SULFATE [Concomitant]
     Active Substance: FERROUS SULFATE
     Route: 048
  7. GABAPENTIN [Concomitant]
     Active Substance: GABAPENTIN
     Route: 048
  8. LYRICA [Concomitant]
     Active Substance: PREGABALIN
     Route: 048
  9. VITAMIN D3 [Concomitant]
     Active Substance: CHOLECALCIFEROL
     Route: 048
  10. VITAMIN C [Concomitant]
     Active Substance: ASCORBIC ACID
  11. SHINGRIX [Concomitant]
     Active Substance: RECOMBINANT VARICELLA ZOSTER VIRUS (VZV) GLYCOPROTEIN E
     Route: 030
  12. NYSTOP [Concomitant]
     Active Substance: NYSTATIN
     Dosage: 1000000 UNITS/GRAM 2 TIMES TO AFFECTED AREA
     Route: 061
  13. NYSTATIN [Concomitant]
     Active Substance: NYSTATIN
     Dosage: 1000000 UNITS/GRAM 3 TIMES TO AFFECTED AREA
     Route: 061
  14. MELATONIN [Concomitant]
     Active Substance: MELATONIN

REACTIONS (1)
  - Death [Fatal]

NARRATIVE: CASE EVENT DATE: 20210709
